FAERS Safety Report 4912412-8 (Version None)
Quarter: 2006Q1

REPORT INFORMATION
  Report Type: 
  Country: None (occurrence: None)
  Receive Date: 20060215
  Receipt Date: 20050307
  Transmission Date: 20060701
  Serious: Yes (Other)
  Sender: FDA-Public Use
  Company Number: US-GLAXOSMITHKLINE-A0548858A

PATIENT

DRUGS (1)
  1. VALTREX [Suspect]

REACTIONS (1)
  - HEPATIC ENZYME INCREASED [None]
